FAERS Safety Report 18479998 (Version 1)
Quarter: 2020Q4

REPORT INFORMATION
  Report Type: Spontaneous
  Country: DE (occurrence: DE)
  Receive Date: 20201109
  Receipt Date: 20201109
  Transmission Date: 20210114
  Serious: Yes (Hospitalization)
  Sender: FDA-Public Use
  Company Number: DE-JNJFOC-20201103341

PATIENT
  Age: 30 Year
  Sex: Male
  Weight: 88 kg

DRUGS (1)
  1. STELARA [Suspect]
     Active Substance: USTEKINUMAB
     Indication: CROHN^S DISEASE
     Route: 058
     Dates: start: 20200930

REACTIONS (1)
  - Disseminated varicella zoster virus infection [Not Recovered/Not Resolved]

NARRATIVE: CASE EVENT DATE: 20201023
